FAERS Safety Report 11802917 (Version 2)
Quarter: 2015Q4

REPORT INFORMATION
  Report Type: Spontaneous
  Country: US (occurrence: US)
  Receive Date: 20151204
  Receipt Date: 20151204
  Transmission Date: 20160305
  Serious: No
  Sender: FDA-Public Use
  Company Number: US-MYLANLABS-2015M1037850

PATIENT
  Sex: Female
  Weight: 99.32 kg

DRUGS (5)
  1. LIDOCAINE PATCH [Suspect]
     Active Substance: LIDOCAINE
     Indication: OFF LABEL USE
  2. LIDOCAINE PATCH [Suspect]
     Active Substance: LIDOCAINE
     Indication: ARTHRODESIS
  3. LIDOCAINE PATCH [Suspect]
     Active Substance: LIDOCAINE
     Indication: SPINAL OSTEOARTHRITIS
  4. LIDOCAINE PATCH [Suspect]
     Active Substance: LIDOCAINE
     Indication: LUMBAR SPINAL STENOSIS
     Dosage: 1 DF, QD, WEARING UP TO 12 HOURS A DAY
     Route: 003
     Dates: start: 20151010, end: 20151011
  5. LIDOCAINE PATCH [Suspect]
     Active Substance: LIDOCAINE
     Indication: INTERVERTEBRAL DISC DEGENERATION

REACTIONS (3)
  - Product quality issue [Not Recovered/Not Resolved]
  - Drug ineffective for unapproved indication [Not Recovered/Not Resolved]
  - Product adhesion issue [Not Recovered/Not Resolved]
